FAERS Safety Report 10588027 (Version 1)
Quarter: 2014Q4

REPORT INFORMATION
  Report Type: Spontaneous
  Country: GB (occurrence: GB)
  Receive Date: 20141117
  Receipt Date: 20141117
  Transmission Date: 20150529
  Serious: Yes (Other)
  Sender: FDA-Public Use
  Company Number: GB-BRISTOL-MYERS SQUIBB COMPANY-21582150

PATIENT

DRUGS (1)
  1. ELIQUIS [Suspect]
     Active Substance: APIXABAN
     Dosage: TABS?CURRENTLY SWITCHED TO IV ROUTE

REACTIONS (3)
  - Dysphagia [Unknown]
  - Gastrectomy [Unknown]
  - Wrong technique in drug usage process [Unknown]
